FAERS Safety Report 5303215-3 (Version None)
Quarter: 2007Q2

REPORT INFORMATION
  Report Type: 
  Country: None (occurrence: None)
  Receive Date: 20070417
  Receipt Date: 20070417
  Transmission Date: 20071010
  Serious: Yes (Hospitalization)
  Sender: FDA-Public Use
  Company Number: None

PATIENT
  Age: 90 Year
  Sex: Female
  Weight: 73.9363 kg

DRUGS (1)
  1. HEPARIN [Suspect]
     Dosage: 60UNITS/KG BOLUS 12UNITS/KG/HR INITIAL INFUSION RATE
     Dates: start: 20060915, end: 20060917

REACTIONS (4)
  - ACTIVATED PARTIAL THROMBOPLASTIN TIME PROLONGED [None]
  - HAEMOGLOBIN DECREASED [None]
  - OCCULT BLOOD POSITIVE [None]
  - RETROPERITONEAL HAEMORRHAGE [None]
